FAERS Safety Report 4621276-1 (Version None)
Quarter: 2005Q1

REPORT INFORMATION
  Report Type: 
  Country: None (occurrence: None)
  Receive Date: 20050329
  Receipt Date: 20050321
  Transmission Date: 20050727
  Serious: Yes (Hospitalization)
  Sender: FDA-Public Use
  Company Number: US-JNJFOC-20050305265

PATIENT
  Age: 71 Year
  Sex: Female

DRUGS (1)
  1. ELMIRON [Suspect]
     Indication: CYSTITIS INTERSTITIAL
     Dosage: HAS TAKEN MEDICATION FOR YEARS
     Route: 049

REACTIONS (4)
  - COLONIC HAEMORRHAGE [None]
  - COLONIC POLYP [None]
  - MYOCARDIAL INFARCTION [None]
  - POLYP [None]
